FAERS Safety Report 21512164 (Version 1)
Quarter: 2022Q4

REPORT INFORMATION
  Report Type: Spontaneous
  Country: US (occurrence: US)
  Receive Date: 20221027
  Receipt Date: 20221027
  Transmission Date: 20230113
  Serious: Yes (Hospitalization, Other)
  Sender: FDA-Public Use
  Company Number: US-SUN PHARMACEUTICAL INDUSTRIES LTD-2022R1-360360

PATIENT
  Age: 66 Year
  Sex: Female

DRUGS (2)
  1. DIGOXIN [Suspect]
     Active Substance: DIGOXIN
     Indication: Atrial fibrillation
     Dosage: 0.125 MILLIGRAM, DAILY
     Route: 065
  2. DIGOXIN [Suspect]
     Active Substance: DIGOXIN
     Dosage: 0.062 MILLIGRAM, DAILY
     Route: 065

REACTIONS (9)
  - Drug level increased [Recovering/Resolving]
  - Toxicity to various agents [Unknown]
  - Mental status changes [Recovering/Resolving]
  - Confusional state [Unknown]
  - Bradycardia [Recovered/Resolved]
  - Hypotension [Recovering/Resolving]
  - Electrocardiogram ST segment depression [Unknown]
  - Electrocardiogram T wave biphasic [Unknown]
  - Atrial fibrillation [Unknown]
